FAERS Safety Report 6443982-9 (Version None)
Quarter: 2009Q4

REPORT INFORMATION
  Report Type: 
  Country: None (occurrence: None)
  Receive Date: 20091117
  Receipt Date: 20091117
  Transmission Date: 20100525
  Serious: No
  Sender: FDA-Public Use
  Company Number: None

PATIENT
  Age: 7 Year
  Sex: Male
  Weight: 21.3191 kg

DRUGS (1)
  1. VYVANSE [Suspect]
     Indication: ATTENTION DEFICIT/HYPERACTIVITY DISORDER
     Dosage: 1 CAPSULE EACH DAY PO
     Route: 048

REACTIONS (4)
  - DECREASED APPETITE [None]
  - DIPLOPIA [None]
  - EYE PAIN [None]
  - INITIAL INSOMNIA [None]
